FAERS Safety Report 21269516 (Version 1)
Quarter: 2022Q3

REPORT INFORMATION
  Report Type: Spontaneous
  Country: LT (occurrence: LT)
  Receive Date: 20220830
  Receipt Date: 20220830
  Transmission Date: 20221027
  Serious: Yes (Hospitalization, Other)
  Sender: FDA-Public Use
  Company Number: LT-Accord-275195

PATIENT
  Age: 26 Year
  Sex: Female

DRUGS (1)
  1. FINGOLIMOD [Suspect]
     Active Substance: FINGOLIMOD
     Indication: Relapsing-remitting multiple sclerosis
     Dates: end: 20200824

REACTIONS (9)
  - Lymphopenia [Recovered/Resolved]
  - Herpes zoster [Unknown]
  - Ophthalmoplegia [Recovered/Resolved]
  - Stomatitis [Unknown]
  - Hypoaesthesia [Recovered/Resolved]
  - Multiple sclerosis relapse [Recovered/Resolved]
  - Immune reconstitution inflammatory syndrome [Recovered/Resolved]
  - Drug withdrawal syndrome [Unknown]
  - Cognitive disorder [Recovered/Resolved]
